FAERS Safety Report 20732607 (Version 2)
Quarter: 2022Q2

REPORT INFORMATION
  Report Type: Report from Study
  Country: US (occurrence: US)
  Receive Date: 20220420
  Receipt Date: 20220511
  Transmission Date: 20220721
  Serious: Yes (Other)
  Sender: FDA-Public Use
  Company Number: US-PFIZER INC-202200581931

PATIENT
  Age: 69 Year
  Sex: Female

DRUGS (1)
  1. DETROL LA [Suspect]
     Active Substance: TOLTERODINE TARTRATE
     Indication: Hypertonic bladder
     Dosage: UNK

REACTIONS (3)
  - Suicidal ideation [Unknown]
  - Therapeutic response shortened [Unknown]
  - Blood cholesterol abnormal [Unknown]
